FAERS Safety Report 9233541 (Version 1)
Quarter: 2013Q1

REPORT INFORMATION
  Report Type: Spontaneous
  Country: US (occurrence: None)
  Receive Date: 20121031
  Receipt Date: 20121031
  Transmission Date: 20140127
  Serious: No
  Sender: FDA-Public Use
  Company Number: PHEH2012US014509

PATIENT
  Age: 55 Year
  Sex: Female
  Weight: 63.5 kg

DRUGS (8)
  1. GILENYA (FTY)CAPSULE, 0.5MG [Suspect]
     Route: 048
  2. PROVIGIL (MODAFINIL) [Suspect]
  3. NAPROXEN (NAPROXEN) [Concomitant]
  4. MAXALT (RIZATRIPTAN [Concomitant]
  5. SERTRALINE (SERTRALINE) [Concomitant]
  6. TRAZODONE (TRAZODONE) [Concomitant]
  7. OXYBUTYNIN (OXYBUTYNIN) [Concomitant]
  8. VITAMIN K (PHYTOMENADIONE) [Concomitant]

REACTIONS (1)
  - Visual impairment [None]
